FAERS Safety Report 6346551-4 (Version None)
Quarter: 2009Q3

REPORT INFORMATION
  Report Type: 
  Country: None (occurrence: None)
  Receive Date: 20090909
  Receipt Date: 20090903
  Transmission Date: 20100115
  Serious: Yes (Life-Threatening)
  Sender: FDA-Public Use
  Company Number: FR-GENENTECH-288701

PATIENT
  Sex: Male

DRUGS (7)
  1. MABTHERA [Suspect]
     Indication: RHEUMATOID ARTHRITIS
     Dosage: 1 G, UNK
     Route: 042
     Dates: start: 20061201
  2. CORTANCYL [Suspect]
     Indication: DRUG USE FOR UNKNOWN INDICATION
     Dosage: UNK
     Route: 065
  3. SECTRAL [Concomitant]
     Indication: DRUG USE FOR UNKNOWN INDICATION
  4. LASIX [Concomitant]
     Indication: DRUG USE FOR UNKNOWN INDICATION
  5. IKOREL [Concomitant]
     Indication: DRUG USE FOR UNKNOWN INDICATION
  6. PLAVIX [Concomitant]
     Indication: DRUG USE FOR UNKNOWN INDICATION
  7. LANTUS [Concomitant]
     Indication: DRUG USE FOR UNKNOWN INDICATION

REACTIONS (2)
  - LUNG DISORDER [None]
  - RENAL FAILURE ACUTE [None]
